FAERS Safety Report 6656704-3 (Version None)
Quarter: 2010Q1

REPORT INFORMATION
  Report Type: 
  Country: None (occurrence: None)
  Receive Date: 20100324
  Receipt Date: 20100125
  Transmission Date: 20100710
  Serious: Yes (Life-Threatening, Hospitalization, Disabling)
  Sender: FDA-Public Use
  Company Number: TRP_06855_2010

PATIENT
  Sex: Male
  Weight: 90.7194 kg

DRUGS (12)
  1. INFERGEN [Suspect]
     Indication: HEPATITIS C
     Dosage: 15 ?G SUBCUTANEOUS
     Route: 058
     Dates: start: 20091123
  2. RIBAVIRIN [Suspect]
     Indication: HEPATITIS C
     Dosage: 1200 MG, DAILY ORAL
     Route: 048
     Dates: start: 20091123
  3. PREZISTA [Concomitant]
  4. NORVIR [Concomitant]
  5. SEROQUEL [Concomitant]
  6. EFFEXOR XR [Concomitant]
  7. PAXIL [Concomitant]
  8. DARVOCET-N 100 [Concomitant]
  9. ACETAMINOPHEN AND HYDROCODONE BITARTRATE [Concomitant]
  10. TRUVADA [Concomitant]
  11. DICLOFENAC POTASSIUM [Concomitant]
  12. BACTRIM [Concomitant]

REACTIONS (13)
  - BIPOLAR DISORDER [None]
  - BLOOD THYROID STIMULATING HORMONE INCREASED [None]
  - CONFUSIONAL STATE [None]
  - DEPRESSION [None]
  - DISORIENTATION [None]
  - HAEMATOCRIT DECREASED [None]
  - HAEMOGLOBIN DECREASED [None]
  - INCOHERENT [None]
  - PLATELET COUNT DECREASED [None]
  - REPETITIVE SPEECH [None]
  - SLUGGISHNESS [None]
  - SUICIDAL IDEATION [None]
  - WHITE BLOOD CELL COUNT DECREASED [None]
